FAERS Safety Report 5949318-1 (Version None)
Quarter: 2008Q4

REPORT INFORMATION
  Report Type: 
  Country: None (occurrence: None)
  Receive Date: 20081021
  Receipt Date: 20070917
  Transmission Date: 20090506
  Serious: No
  Sender: FDA-Public Use
  Company Number: HQWYE351502AUG07

PATIENT
  Age: 57 Year
  Sex: Female

DRUGS (4)
  1. PREMARIN [Suspect]
     Indication: HORMONE REPLACEMENT THERAPY
     Dosage: 1.25MG AND TAKES HALF A TABLET, ORAL
     Route: 048
     Dates: start: 20040101
  2. ADVIL [Concomitant]
  3. IBUPROFEN [Concomitant]
  4. HYDRODIURIL [Concomitant]

REACTIONS (2)
  - DRUG INEFFECTIVE [None]
  - HAIR TEXTURE ABNORMAL [None]
